FAERS Safety Report 8586763 (Version 4)
Quarter: 2012Q4

REPORT INFORMATION
  Report Type: Report from Study
  Country: US (occurrence: US)
  Receive Date: 20120530
  Receipt Date: 20121016
  Transmission Date: 20130627
  Serious: Yes (Hospitalization)
  Sender: FDA-Public Use
  Company Number: US-CELGENEUS-163-AB007-12052196

PATIENT
  Age: 70 Year
  Sex: Male
  Weight: 91.71 kg

DRUGS (12)
  1. ABI-007 [Suspect]
     Indication: PANCREATIC CANCER METASTATIC
     Dosage: 125 milligram/sq. meter
     Route: 041
     Dates: start: 20120214
  2. ABI-007 [Suspect]
     Dosage: 100 milligram/sq. meter
     Route: 041
     Dates: start: 20120501, end: 20120501
  3. GEMCITABINE [Suspect]
     Indication: PANCREATIC CANCER METASTATIC
     Dosage: 1000 milligram/sq. meter
     Route: 041
     Dates: start: 20120214
  4. GEMCITABINE [Suspect]
     Dosage: 800 milligram/sq. meter
     Route: 041
     Dates: start: 20120501, end: 20120501
  5. LISINOPRIL [Concomitant]
     Indication: HYPERTENSION
     Dosage: 10 Milligram
     Route: 048
     Dates: start: 2008
  6. ASPIRIN [Concomitant]
     Indication: PROPHYLAXIS
     Dosage: 81 Milligram
     Route: 048
     Dates: start: 2002
  7. OXYCODONE [Concomitant]
     Indication: PAIN
     Dosage: 20 Milligram
     Route: 048
     Dates: start: 20120320
  8. VITAMIN C AND E [Concomitant]
     Indication: NUTRITIONAL SUPPLEMENT
     Dosage: 1 Tablet
     Route: 048
     Dates: start: 2002
  9. PROCHLORPERAZINE [Concomitant]
     Indication: DRUG USE FOR UNKNOWN INDICATION
     Route: 065
  10. EMLA [Concomitant]
     Indication: DRUG USE FOR UNKNOWN INDICATION
     Route: 061
  11. FLUIDS [Concomitant]
     Indication: DRUG USE FOR UNKNOWN INDICATION
     Route: 041
     Dates: start: 2012
  12. HYDROCODONE [Concomitant]
     Indication: CHRONIC PAIN
     Route: 065

REACTIONS (1)
  - Ascites [Recovered/Resolved]
